FAERS Safety Report 9496365 (Version 1)
Quarter: 2013Q3

REPORT INFORMATION
  Report Type: Spontaneous
  Country: IE (occurrence: IE)
  Receive Date: 20130904
  Receipt Date: 20130904
  Transmission Date: 20140515
  Serious: Yes (Other)
  Sender: FDA-Public Use
  Company Number: IE-JNJFOC-20130815002

PATIENT
  Sex: 0

DRUGS (2)
  1. INFLIXIMAB, RECOMBINANT [Suspect]
     Indication: CROHN^S DISEASE
     Route: 042
  2. INFLIXIMAB, RECOMBINANT [Suspect]
     Indication: COLITIS ULCERATIVE
     Route: 042

REACTIONS (6)
  - Lupus-like syndrome [Unknown]
  - Treatment failure [Unknown]
  - Hilar lymphadenopathy [Unknown]
  - Infusion related reaction [Unknown]
  - Antinuclear antibody positive [Unknown]
  - Double stranded DNA antibody positive [Unknown]
